FAERS Safety Report 8956395 (Version 2)
Quarter: 2013Q1

REPORT INFORMATION
  Report Type: Report from Study
  Country: US (occurrence: US)
  Receive Date: 20121210
  Receipt Date: 20130118
  Transmission Date: 20140127
  Serious: Yes (Hospitalization)
  Sender: FDA-Public Use
  Company Number: US-SANOFI-AVENTIS-2012SA088570

PATIENT
  Age: 42 Year
  Sex: Female

DRUGS (25)
  1. DOCETAXEL [Suspect]
     Indication: SQUAMOUS CELL CARCINOMA OF HEAD AND NECK
     Route: 065
     Dates: start: 20121115
  2. DOCETAXEL [Suspect]
     Indication: SQUAMOUS CELL CARCINOMA OF HEAD AND NECK
     Route: 065
     Dates: start: 20121206
  3. CISPLATIN [Suspect]
     Indication: SQUAMOUS CELL CARCINOMA OF HEAD AND NECK
     Route: 065
     Dates: start: 20121115
  4. CISPLATIN [Suspect]
     Indication: SQUAMOUS CELL CARCINOMA OF HEAD AND NECK
     Route: 065
     Dates: start: 20121206
  5. BLINDED THERAPY [Suspect]
     Indication: SQUAMOUS CELL CARCINOMA OF HEAD AND NECK
     Route: 048
     Dates: start: 20121115
  6. BLINDED THERAPY [Suspect]
     Indication: SQUAMOUS CELL CARCINOMA OF HEAD AND NECK
     Route: 048
     Dates: start: 20121206
  7. CARBOPLATIN [Suspect]
     Indication: SQUAMOUS CELL CARCINOMA OF HEAD AND NECK
     Route: 065
     Dates: start: 20121115
  8. ACETAMINOPHEN [Concomitant]
     Route: 048
  9. BENZONATATE [Concomitant]
     Indication: COUGH
     Dosage: FREQUENCY: TID PRN
     Route: 048
  10. CITALOPRAM [Concomitant]
     Route: 048
  11. DEXAMETHASONE [Concomitant]
     Route: 048
  12. DOC-Q-LACE [Concomitant]
     Indication: CONSTIPATION
     Route: 048
  13. DOXYCYCLINE MONOHYDRATE [Concomitant]
     Route: 048
  14. FENTANYL [Concomitant]
     Indication: PAIN
     Dosage: ROUTE: SKIN?FREQUENCY: Q72H
  15. HYDROCODONE W/APAP [Concomitant]
     Indication: PAIN
     Dosage: 10/325 MG
     Route: 048
  16. FERROUS FUMARATE/IRON [Concomitant]
     Route: 048
  17. MELOXICAM [Concomitant]
     Route: 048
  18. NEULASTA [Concomitant]
     Dosage: STRENGTH: 6 MG/ 0.6 ML
     Route: 058
  19. OMEPRAZOLE [Concomitant]
     Route: 048
  20. ONDANSETRON HYDROCHLORIDE [Concomitant]
     Route: 048
  21. PROCHLORPERAZINE [Concomitant]
     Indication: NAUSEA
     Route: 048
  22. PROCHLORPERAZINE [Concomitant]
     Indication: VOMITING
     Route: 048
  23. ROPINIROLE [Concomitant]
     Route: 048
  24. TRAZODONE [Concomitant]
     Route: 048
  25. VITAMIN B [Concomitant]
     Route: 048

REACTIONS (5)
  - Hyponatraemia [Recovered/Resolved]
  - Hypokalaemia [Unknown]
  - Diarrhoea [Recovered/Resolved]
  - Dehydration [Unknown]
  - Pyrexia [Unknown]
